FAERS Safety Report 14321931 (Version 1)
Quarter: 2017Q4

REPORT INFORMATION
  Report Type: Report from Study
  Country: US (occurrence: US)
  Receive Date: 20171225
  Receipt Date: 20171225
  Transmission Date: 20180321
  Serious: Yes (Other)
  Sender: FDA-Public Use
  Company Number: US-ROCHE-2042313

PATIENT

DRUGS (4)
  1. RIBAVIRIN. [Suspect]
     Active Substance: RIBAVIRIN
     Indication: CHRONIC KIDNEY DISEASE
     Route: 065
  2. LEDIPASVIR [Suspect]
     Active Substance: LEDIPASVIR
     Indication: CHRONIC KIDNEY DISEASE
     Route: 065
  3. SOFOSBUVIR [Suspect]
     Active Substance: SOFOSBUVIR
     Indication: CHRONIC KIDNEY DISEASE
     Route: 065
  4. SIMEPREVIR [Suspect]
     Active Substance: SIMEPREVIR
     Indication: CHRONIC KIDNEY DISEASE
     Route: 065

REACTIONS (16)
  - Rash [Unknown]
  - Mental status changes [Unknown]
  - Vomiting [Unknown]
  - Abdominal pain [Unknown]
  - Irritability [Unknown]
  - Anaemia [Unknown]
  - Upper respiratory tract infection [Unknown]
  - Wheezing [Unknown]
  - Hyperbilirubinaemia [Unknown]
  - Mood altered [Unknown]
  - Dyspnoea [Unknown]
  - Fatigue [Unknown]
  - Photosensitivity reaction [Unknown]
  - Nausea [Unknown]
  - Syncope [Unknown]
  - Dizziness [Unknown]
